FAERS Safety Report 6949035 (Version 6)
Quarter: 2025Q1

REPORT INFORMATION
  Report Type: Spontaneous
  Country: FR (occurrence: FR)
  Receive Date: 20090323
  Receipt Date: 20250122
  Transmission Date: 20250408
  Serious: Yes (Death, Other)
  Sender: MYLAN
  Company Number: FR-PFIZER INC-2009182924

PATIENT
  Age: 62 Year
  Sex: Male

DRUGS (1)
  1. XALATAN [Suspect]
     Active Substance: LATANOPROST
     Indication: Glaucoma
     Dosage: 2 GTT, 1X/DAY REGIMEN DOSE UNIT: DROP
     Route: 047
     Dates: start: 20000327

REACTIONS (3)
  - Metastases to liver [Fatal]
  - Metastases to lung [Fatal]
  - Choroid melanoma [Fatal]

NARRATIVE: CASE EVENT DATE: 20020722
